FAERS Safety Report 7092583-0 (Version None)
Quarter: 2010Q4

REPORT INFORMATION
  Report Type: 
  Country: None (occurrence: None)
  Receive Date: 20101110
  Receipt Date: 20101105
  Transmission Date: 20110411
  Serious: Yes (Other)
  Sender: FDA-Public Use
  Company Number: US-BAYER-201040089NA

PATIENT
  Age: 19 Year
  Sex: Female

DRUGS (2)
  1. YAZ [Suspect]
     Indication: PRODUCT USED FOR UNKNOWN INDICATION
     Route: 048
     Dates: start: 20080101, end: 20081009
  2. COUMADIN [Concomitant]
     Indication: DEEP VEIN THROMBOSIS

REACTIONS (3)
  - DEEP VEIN THROMBOSIS [None]
  - JOINT SWELLING [None]
  - PAIN IN EXTREMITY [None]
